FAERS Safety Report 15001466 (Version 3)
Quarter: 2018Q4

REPORT INFORMATION
  Report Type: Spontaneous
  Country: US (occurrence: US)
  Receive Date: 20180612
  Receipt Date: 20181203
  Transmission Date: 20190204
  Serious: Yes (Hospitalization)
  Sender: FDA-Public Use
  Company Number: US-OTSUKA-2018_015034

PATIENT
  Age: 88 Year
  Sex: Male

DRUGS (2)
  1. SAMSCA [Suspect]
     Active Substance: TOLVAPTAN
     Indication: BLOOD SODIUM DECREASED
     Dosage: 30 MG, QD (DAILY)
     Route: 048
  2. SAMSCA [Suspect]
     Active Substance: TOLVAPTAN
     Indication: INAPPROPRIATE ANTIDIURETIC HORMONE SECRETION
     Dosage: UNK (30 DAY SUPPLY)
     Route: 065

REACTIONS (27)
  - Upper limb fracture [Unknown]
  - Blood chloride decreased [Unknown]
  - Blood sodium decreased [Unknown]
  - Cardiac failure congestive [Unknown]
  - Blood albumin decreased [Unknown]
  - Blood pressure abnormal [Unknown]
  - Lymphocyte count decreased [Unknown]
  - Blood albumin decreased [Unknown]
  - Body temperature decreased [Unknown]
  - Mean platelet volume decreased [Unknown]
  - Incorrect dose administered [Unknown]
  - Dyspnoea [Recovered/Resolved]
  - Blood osmolarity decreased [Unknown]
  - Carbon dioxide increased [Unknown]
  - Haemoglobin decreased [Unknown]
  - Neutrophil count increased [Unknown]
  - Protein total decreased [Unknown]
  - Urinary incontinence [Unknown]
  - Haematocrit decreased [Unknown]
  - Oedema peripheral [Recovering/Resolving]
  - Therapeutic response shortened [Unknown]
  - Fall [Unknown]
  - Blood calcium decreased [Unknown]
  - Blood bilirubin increased [Unknown]
  - Respiratory rate increased [Unknown]
  - Red cell distribution width increased [Unknown]
  - Red blood cell count decreased [Unknown]

NARRATIVE: CASE EVENT DATE: 2017
